FAERS Safety Report 17829419 (Version 3)
Quarter: 2020Q3

REPORT INFORMATION
  Report Type: Spontaneous
  Country: DE (occurrence: DE)
  Receive Date: 20200527
  Receipt Date: 20200920
  Transmission Date: 20201102
  Serious: Yes (Other)
  Sender: FDA-Public Use
  Company Number: DE-ROCHE-2562106

PATIENT
  Age: 47 Year
  Sex: Female
  Weight: 52 kg

DRUGS (5)
  1. PALLADON [Concomitant]
     Active Substance: HYDROMORPHONE
     Indication: MALIGNANT MELANOMA
     Dosage: IN THE BEGINNING 3 TIMES A DAY, THEN REDUCED TO 1 TIME PER DAY
     Route: 048
     Dates: start: 20191025, end: 20200511
  2. ZELBORAF [Suspect]
     Active Substance: VEMURAFENIB
     Indication: MALIGNANT MELANOMA
     Dosage: 2X 4 DOSE FORMS PER DAY
     Route: 065
     Dates: start: 20191102, end: 20200505
  3. COTELLIC [Suspect]
     Active Substance: COBIMETINIB
     Indication: MALIGNANT MELANOMA
     Dosage: IN THE BEGINNING 3 TIMES A DAY, THEN DOSE REDUCED
     Route: 048
     Dates: start: 20191102, end: 20200505
  4. IPILIMUMAB [Concomitant]
     Active Substance: IPILIMUMAB
     Dates: start: 202005
  5. NIVOLUMAB [Concomitant]
     Active Substance: NIVOLUMAB
     Dates: start: 202005

REACTIONS (2)
  - Rash [Recovering/Resolving]
  - Skin exfoliation [Recovering/Resolving]

NARRATIVE: CASE EVENT DATE: 20200227
